FAERS Safety Report 15998091 (Version 9)
Quarter: 2019Q4

REPORT INFORMATION
  Report Type: Spontaneous
  Country: US (occurrence: US)
  Receive Date: 20190223
  Receipt Date: 20191016
  Transmission Date: 20200122
  Serious: Yes (Death, Hospitalization)
  Sender: FDA-Public Use
  Company Number: US-ACTELION-A-NJ2019-186736

PATIENT
  Age: 76 Year
  Sex: Female
  Weight: 86.62 kg

DRUGS (28)
  1. FERROUS SULFATE. [Concomitant]
     Active Substance: FERROUS SULFATE
     Dosage: 325 MG, QAM
  2. TRULICITY [Concomitant]
     Active Substance: DULAGLUTIDE
     Dosage: 1.5 MG/0.5ML
  3. BUDESONIDE. [Concomitant]
     Active Substance: BUDESONIDE
     Dosage: 0.5 MG/2ML
     Route: 055
  4. OPSUMIT [Suspect]
     Active Substance: MACITENTAN
     Indication: PULMONARY ARTERIAL HYPERTENSION
     Dosage: 10 MG, QD
     Route: 048
     Dates: start: 20180814
  5. SILDENAFIL CITRATE. [Suspect]
     Active Substance: SILDENAFIL CITRATE
     Indication: PRODUCT USED FOR UNKNOWN INDICATION
     Dosage: UNK
     Route: 065
     Dates: start: 20190312
  6. ACETAMINOPHEN. [Concomitant]
     Active Substance: ACETAMINOPHEN
     Dosage: 650 MG, QD
     Route: 048
  7. IPRATROPIUM BROMIDE AND ALBUTEROL SULFATE [Concomitant]
     Active Substance: ALBUTEROL SULFATE\IPRATROPIUM BROMIDE
     Dosage: 0.5-2.5 MG/3ML, PRNUNK
     Route: 055
  8. KRILL OIL [Concomitant]
     Active Substance: DIETARY SUPPLEMENT\KRILL OIL
     Route: 048
  9. ULORIC [Concomitant]
     Active Substance: FEBUXOSTAT
     Dosage: 1 TABLET, UNK
     Route: 048
  10. HYDROCODONE BITARTRATE AND ACETAMINOPHEN [Concomitant]
     Active Substance: ACETAMINOPHEN\HYDROCODONE BITARTRATE
     Dosage: 10-325 UNK
  11. TOPIRAMATE. [Concomitant]
     Active Substance: TOPIRAMATE
     Dosage: 200 MG
  12. ACETYLCYSTEINE. [Concomitant]
     Active Substance: ACETYLCYSTEINE
     Dosage: 20 %, 3XQD, PRN
  13. NEXIUM [Concomitant]
     Active Substance: ESOMEPRAZOLE MAGNESIUM
     Dosage: 40 MG
  14. TRULICITY [Concomitant]
     Active Substance: DULAGLUTIDE
     Dosage: 0.2 UNITS, WEEKLY
     Route: 058
  15. BUMETANIDE. [Concomitant]
     Active Substance: BUMETANIDE
     Dosage: 2 MG, QD
  16. COLCHICINE. [Concomitant]
     Active Substance: COLCHICINE
     Dosage: 0.6 MG, QD, PRN
  17. OPSUMIT [Suspect]
     Active Substance: MACITENTAN
     Dosage: 10 MG, QD
     Route: 048
     Dates: start: 20190323
  18. SILDENAFIL CITRATE. [Suspect]
     Active Substance: SILDENAFIL CITRATE
     Dosage: UNK
     Route: 065
     Dates: start: 20190323
  19. AMBIEN [Concomitant]
     Active Substance: ZOLPIDEM TARTRATE
     Dosage: 10 MG, QPRN
  20. AZO CRANBERRY [Concomitant]
     Active Substance: DIETARY SUPPLEMENT
     Dosage: UNK, PRN
     Route: 048
  21. BENLYSTA [Concomitant]
     Active Substance: BELIMUMAB
     Dosage: Q 30 DAYS
     Route: 042
  22. CLOTRIMAZOLE AND BETAMETHASONE [Concomitant]
     Active Substance: BETAMETHASONE\CLOTRIMAZOLE
     Dosage: 1-0.5%
  23. LORAZEPAM. [Concomitant]
     Active Substance: LORAZEPAM
     Dosage: 1 MG
  24. PREGABALIN. [Concomitant]
     Active Substance: PREGABALIN
     Dosage: 75 MG, TID
     Route: 048
  25. HYDROXYCHLOROQUINE [Concomitant]
     Active Substance: HYDROXYCHLOROQUINE
     Dosage: 200 MG, PRN
  26. PAROXETINE. [Concomitant]
     Active Substance: PAROXETINE
     Dosage: 20 MG, QAM
  27. PROLIA [Concomitant]
     Active Substance: DENOSUMAB
     Dosage: EVERY 6 MONTHS
     Route: 058
  28. SUCRALFATE. [Concomitant]
     Active Substance: SUCRALFATE
     Dosage: 1 G, QID

REACTIONS (21)
  - Surgery [Unknown]
  - Aortic bypass [Recovered/Resolved]
  - Atelectasis [Unknown]
  - Haemoglobin decreased [Unknown]
  - Haematocrit decreased [Unknown]
  - Loss of consciousness [Unknown]
  - Poor peripheral circulation [Recovered/Resolved]
  - Pain [Unknown]
  - Hypotension [Unknown]
  - Urinary retention [Recovered/Resolved]
  - Pleural effusion [Recovered/Resolved]
  - Hypoxia [Unknown]
  - Respiratory failure [Unknown]
  - Elective surgery [Unknown]
  - Packed red blood cell transfusion [Recovered/Resolved]
  - Syncope [Unknown]
  - Death [Fatal]
  - Platelet count decreased [Unknown]
  - Pneumonia [Unknown]
  - Peripheral vascular disorder [Recovered/Resolved]
  - Dyspnoea [Unknown]

NARRATIVE: CASE EVENT DATE: 20190207
